FAERS Safety Report 15528034 (Version 5)
Quarter: 2019Q1

REPORT INFORMATION
  Report Type: Spontaneous
  Country: FR (occurrence: FR)
  Receive Date: 20181018
  Receipt Date: 20190122
  Transmission Date: 20190417
  Serious: Yes (Death, Life-Threatening, Hospitalization, Other)
  Sender: FDA-Public Use
  Company Number: FR-MYLANLABS-2018M1078366

PATIENT
  Age: 46 Year
  Sex: Male
  Weight: 100 kg

DRUGS (9)
  1. AVELUMAB [Suspect]
     Active Substance: AVELUMAB
     Indication: NEUROENDOCRINE CARCINOMA OF THE SKIN
     Dosage: 1110 MG, ONCE EVERY 2 WEEKS
     Route: 042
     Dates: start: 20171018, end: 20171130
  2. TAXOL [Suspect]
     Active Substance: PACLITAXEL
     Indication: NEUROENDOCRINE CARCINOMA OF THE SKIN
     Dosage: UNK
     Dates: start: 20180108, end: 20180108
  3. AVELUMAB [Suspect]
     Active Substance: AVELUMAB
     Dosage: 1000 MG, ONCE EVERY 2 WEEKS
     Route: 042
     Dates: start: 20171228, end: 20171228
  4. BISOPROLOL [Concomitant]
     Active Substance: BISOPROLOL
     Dosage: 1.25 MG, 1X/DAY
     Route: 048
     Dates: start: 2010
  5. BISOPROLOL [Concomitant]
     Active Substance: BISOPROLOL
     Indication: HYPERTENSION
     Dosage: 1.25 MG, 1X/DAY
     Route: 048
     Dates: start: 201010
  6. KENZEN [Concomitant]
     Active Substance: CANDESARTAN
     Indication: HYPERTENSION
     Dosage: 8 MG, 1X/DAY
     Route: 048
     Dates: start: 201010
  7. TRAMADOL. [Concomitant]
     Active Substance: TRAMADOL
     Indication: ABDOMINAL PAIN
     Dosage: 50 MG, 1X/DAY
     Route: 048
     Dates: start: 201709, end: 20171018
  8. CARBOPLATIN. [Suspect]
     Active Substance: CARBOPLATIN
     Indication: NEUROENDOCRINE CARCINOMA OF THE SKIN
     Dosage: UNK
     Dates: start: 20180108, end: 20180108
  9. DOLIPRANE [Concomitant]
     Active Substance: ACETAMINOPHEN
     Indication: ABDOMINAL PAIN
     Dosage: 1 G, AS NECESSARY
     Route: 048
     Dates: start: 201709

REACTIONS (5)
  - Hyperglycaemia [Recovering/Resolving]
  - General physical health deterioration [Fatal]
  - Neoplasm progression [Fatal]
  - Diabetes mellitus [Not Recovered/Not Resolved]
  - Aplasia [Recovered/Resolved]

NARRATIVE: CASE EVENT DATE: 20171226
